FAERS Safety Report 13705354 (Version 1)
Quarter: 2017Q2

REPORT INFORMATION
  Report Type: Spontaneous
  Country: BR (occurrence: BR)
  Receive Date: 20170630
  Receipt Date: 20170630
  Transmission Date: 20170830
  Serious: Yes (Hospitalization, Other)
  Sender: FDA-Public Use
  Company Number: BR-TORRENT-00004022

PATIENT
  Age: 62 Year
  Sex: Male
  Weight: 81 kg

DRUGS (1)
  1. ROSUCOR [Suspect]
     Active Substance: ROSUVASTATIN CALCIUM

REACTIONS (5)
  - Hypersensitivity [Unknown]
  - Dysuria [Unknown]
  - Peripheral swelling [Unknown]
  - Erythema [Unknown]
  - Skin exfoliation [Unknown]
